FAERS Safety Report 8291208-6 (Version None)
Quarter: 2012Q2

REPORT INFORMATION
  Report Type: 
  Country: None (occurrence: None)
  Receive Date: 20120417
  Receipt Date: 20120409
  Transmission Date: 20120825
  Serious: Yes (Hospitalization, Other)
  Sender: FDA-Public Use
  Company Number: US-BAYER-2011-083558

PATIENT
  Age: 30 Year
  Sex: Female
  Weight: 139.23 kg

DRUGS (3)
  1. YAZ [Suspect]
  2. YAZ [Suspect]
     Indication: PREMENSTRUAL SYNDROME
     Dosage: UNK
     Route: 048
     Dates: start: 20070101, end: 20090101
  3. YAZ [Suspect]
     Indication: ACNE

REACTIONS (8)
  - EMOTIONAL DISTRESS [None]
  - HYSTERECTOMY [None]
  - INJURY [None]
  - OVARIAN CYST [None]
  - CHOLECYSTECTOMY [None]
  - ANXIETY [None]
  - PAIN [None]
  - ANHEDONIA [None]
